FAERS Safety Report 21307585 (Version 3)
Quarter: 2022Q4

REPORT INFORMATION
  Report Type: Report from Study
  Country: IT (occurrence: IT)
  Receive Date: 20220908
  Receipt Date: 20221107
  Transmission Date: 20230112
  Serious: Yes (Life-Threatening, Hospitalization)
  Sender: FDA-Public Use
  Company Number: IT-NOVARTISPH-NVSC2022IT202575

PATIENT
  Age: 82 Year
  Sex: Male
  Weight: 67 kg

DRUGS (16)
  1. TAFINLAR [Suspect]
     Active Substance: DABRAFENIB MESYLATE
     Indication: Thyroid cancer
     Dosage: 150 MG, BID
     Route: 048
     Dates: start: 20220728, end: 20220808
  2. TAFINLAR [Suspect]
     Active Substance: DABRAFENIB MESYLATE
     Indication: BRAF gene mutation
     Dosage: 75 MG, BID (1 CAPSULE IN THE MORNING+ 1 CAPSULE IN THE EVENING)
     Route: 048
     Dates: start: 20220917, end: 20221009
  3. TRAMETINIB [Suspect]
     Active Substance: TRAMETINIB
     Indication: Thyroid cancer
     Dosage: 2 MG, QD
     Route: 048
     Dates: start: 20220728, end: 20220808
  4. TRAMETINIB [Suspect]
     Active Substance: TRAMETINIB
     Indication: BRAF gene mutation
     Dosage: 1 MG, QD (2 TABLETS IN THE MORNING)
     Route: 048
     Dates: start: 20220917, end: 20221009
  5. LEVOTHYROXINE [Concomitant]
     Active Substance: LEVOTHYROXINE
     Indication: Product used for unknown indication
     Dosage: 125 MCG UNK (20 MINUTES BEFORE BREAKFAST)
     Route: 065
  6. BICALUTAMIDE [Concomitant]
     Active Substance: BICALUTAMIDE
     Indication: Product used for unknown indication
     Dosage: 50 MG
     Route: 065
  7. DECAPEPTYL [Concomitant]
     Indication: Product used for unknown indication
     Dosage: UNK, Q3MO (EVERY 3 MONTHS)
     Route: 065
  8. BISOPROLOL [Concomitant]
     Active Substance: BISOPROLOL
     Indication: Product used for unknown indication
     Dosage: 1.25 MG
     Route: 065
  9. LERCANIDIPINE HYDROCHLORIDE [Concomitant]
     Active Substance: LERCANIDIPINE HYDROCHLORIDE
     Indication: Product used for unknown indication
     Dosage: 10 MG (HALF A TABLET + 1 TABLET)
     Route: 065
  10. FEBUXOSTAT [Concomitant]
     Active Substance: FEBUXOSTAT
     Indication: Product used for unknown indication
     Dosage: 80 MG
     Route: 065
  11. CHOLECALCIFEROL [Concomitant]
     Active Substance: CHOLECALCIFEROL
     Indication: Product used for unknown indication
     Dosage: 50000 IU, QMO (EACH MONTH)
     Route: 065
  12. KCL [Concomitant]
     Active Substance: POTASSIUM CHLORIDE
     Indication: Product used for unknown indication
     Dosage: 600 MG, BID (AT LUNCH AND DINNER)
     Route: 065
  13. MAGNESIUM [Concomitant]
     Active Substance: MAGNESIUM
     Indication: Product used for unknown indication
     Dosage: UNK (MORNING AND EVENING)
     Route: 065
  14. LUMIGAN [Concomitant]
     Active Substance: BIMATOPROST
     Indication: Product used for unknown indication
     Dosage: UNK
     Route: 065
  15. COSOPT [Concomitant]
     Active Substance: DORZOLAMIDE HYDROCHLORIDE\TIMOLOL MALEATE
     Indication: Product used for unknown indication
     Dosage: UNK
     Route: 065
  16. LAVENTAIR [Concomitant]
     Indication: Product used for unknown indication
     Dosage: UNK
     Route: 065

REACTIONS (8)
  - Neutropenia [Not Recovered/Not Resolved]
  - Diarrhoea [Recovered/Resolved]
  - Weight decreased [Unknown]
  - Asthenia [Unknown]
  - Condition aggravated [Unknown]
  - Nausea [Recovering/Resolving]
  - Vomiting [Unknown]
  - Pyrexia [Unknown]

NARRATIVE: CASE EVENT DATE: 20220801
